FAERS Safety Report 9017351 (Version 4)
Quarter: 2013Q2

REPORT INFORMATION
  Report Type: Spontaneous
  Country: US (occurrence: US)
  Receive Date: 20130117
  Receipt Date: 20130502
  Transmission Date: 20140414
  Serious: No
  Sender: FDA-Public Use
  Company Number: US-PFIZER INC-2013019010

PATIENT
  Age: 64 Year
  Sex: Female
  Weight: 58.96 kg

DRUGS (1)
  1. CHANTIX [Suspect]
     Indication: SMOKING CESSATION THERAPY
     Dosage: UNK, 2X/DAY
     Route: 048
     Dates: start: 201207, end: 2012

REACTIONS (2)
  - Drug ineffective [Recovered/Resolved]
  - Nicotine dependence [Unknown]
